FAERS Safety Report 5838377-2 (Version None)
Quarter: 2008Q3

REPORT INFORMATION
  Report Type: 
  Country: None (occurrence: None)
  Receive Date: 20080806
  Receipt Date: 20080721
  Transmission Date: 20090109
  Serious: Yes (Hospitalization)
  Sender: FDA-Public Use
  Company Number: DSA_32211_2008

PATIENT
  Age: 54 Year
  Sex: Male

DRUGS (17)
  1. VASOTEC [Suspect]
     Indication: DRUG USE FOR UNKNOWN INDICATION
     Dosage: 10 MG BID ORAL, 5 MG BID ORAL
     Route: 048
     Dates: start: 20000501
  2. VASOTEC [Suspect]
     Indication: DRUG USE FOR UNKNOWN INDICATION
     Dosage: 10 MG BID ORAL, 5 MG BID ORAL
     Route: 048
     Dates: start: 20000516
  3. CORTICOSTEROIDS [Suspect]
     Indication: BACK PAIN
     Dosage: 8 EPIDURAL
     Route: 008
     Dates: start: 20000511
  4. CORTICOSTEROIDS [Suspect]
     Indication: NECK PAIN
     Dosage: 8 EPIDURAL
     Route: 008
     Dates: start: 20000511
  5. IMDUR [Concomitant]
  6. ASPIRIN [Concomitant]
  7. CELEXA [Concomitant]
  8. LIPITOR [Concomitant]
  9. TENORMIN [Concomitant]
  10. LASIX [Concomitant]
  11. ALDACTONE [Concomitant]
  12. LANOXIN [Concomitant]
  13. PREVACID [Concomitant]
  14. SOMA [Concomitant]
  15. DARVOCET-N 100 [Concomitant]
  16. DURAGESIC-100 [Concomitant]
  17. NICOTROL [Concomitant]

REACTIONS (7)
  - ANXIETY [None]
  - BACK PAIN [None]
  - CHEST DISCOMFORT [None]
  - CHEST PAIN [None]
  - HYPOTENSION [None]
  - NECK PAIN [None]
  - PANIC REACTION [None]
